FAERS Safety Report 4822986-3 (Version None)
Quarter: 2005Q4

REPORT INFORMATION
  Report Type: 
  Country: None (occurrence: None)
  Receive Date: 20051107
  Receipt Date: 20051107
  Transmission Date: 20060501
  Serious: Yes (Other)
  Sender: FDA-Public Use
  Company Number: None

PATIENT
  Age: 36 Year
  Sex: Male
  Weight: 64.8644 kg

DRUGS (5)
  1. VALPROIC ACID 250 MG /5 ML HI-TECH PHARMACAL [Suspect]
     Indication: MOOD ALTERED
     Dosage: 750 MG , 1000 MG HS PO
     Route: 048
     Dates: start: 20050527, end: 20050923
  2. BENTROPINE [Concomitant]
  3. SENNA [Concomitant]
  4. LACTULOSE [Concomitant]
  5. MULTI-VITAMIN [Concomitant]

REACTIONS (2)
  - PRURITUS [None]
  - RASH MACULO-PAPULAR [None]
